FAERS Safety Report 18431369 (Version 1)
Quarter: 2020Q4

REPORT INFORMATION
  Report Type: Spontaneous
  Country: US (occurrence: US)
  Receive Date: 20201027
  Receipt Date: 20201027
  Transmission Date: 20210114
  Serious: Yes (Other)
  Sender: FDA-Public Use
  Company Number: None

PATIENT
  Age: 56 Year
  Sex: Male
  Weight: 113.4 kg

DRUGS (2)
  1. BUPRENORPHINE-NALOXONE 8-2MG TABLETS [Suspect]
     Active Substance: BUPRENORPHINE\NALOXONE
  2. BUPRENORPHINE-NALOXONE 8-2MG TABLETS [Concomitant]
     Active Substance: BUPRENORPHINE\NALOXONE
     Dates: start: 20190625, end: 20191027

REACTIONS (5)
  - Lip dry [None]
  - Vomiting [None]
  - Oral pain [None]
  - Nausea [None]
  - Chapped lips [None]

NARRATIVE: CASE EVENT DATE: 20190701
